FAERS Safety Report 20505264 (Version 1)
Quarter: 2022Q1

REPORT INFORMATION
  Report Type: Spontaneous
  Country: US (occurrence: US)
  Receive Date: 20220223
  Receipt Date: 20220223
  Transmission Date: 20220423
  Serious: Yes (Other)
  Sender: FDA-Public Use
  Company Number: US-SA-SAC20220218001210

PATIENT
  Age: 36 Year
  Sex: Female

DRUGS (1)
  1. AUBAGIO [Suspect]
     Active Substance: TERIFLUNOMIDE
     Indication: Multiple sclerosis
     Dosage: 14 MG, QD
     Route: 048
     Dates: start: 20210923

REACTIONS (12)
  - Multiple sclerosis relapse [Unknown]
  - Balance disorder [Unknown]
  - Dizziness [Unknown]
  - Fatigue [Unknown]
  - Pruritus [Unknown]
  - Pain [Unknown]
  - Sensory disturbance [Unknown]
  - Sexual dysfunction [Unknown]
  - Back pain [Unknown]
  - Alopecia [Unknown]
  - Headache [Unknown]
  - Paraesthesia [Unknown]
